FAERS Safety Report 7008246-3 (Version None)
Quarter: 2010Q3

REPORT INFORMATION
  Report Type: 
  Country: None (occurrence: None)
  Receive Date: 20100922
  Receipt Date: 20100908
  Transmission Date: 20110219
  Serious: No
  Sender: FDA-Public Use
  Company Number: US-B.I. PHARMACEUTICALS,INC./RIDGEFIELD-2010-BP-10195BP

PATIENT
  Age: 58 Year
  Sex: Female

DRUGS (1)
  1. MIRAPEX [Suspect]
     Indication: PARKINSON'S DISEASE
     Dosage: 3 MG
     Route: 048
     Dates: start: 20030101

REACTIONS (2)
  - DRUG INEFFECTIVE [None]
  - TREMOR [None]
